FAERS Safety Report 15997709 (Version 1)
Quarter: 2019Q1

REPORT INFORMATION
  Report Type: Other
  Country: CN (occurrence: CN)
  Receive Date: 20190222
  Receipt Date: 20190222
  Transmission Date: 20190418
  Serious: Yes (Other)
  Sender: FDA-Public Use
  Company Number: CN-GE HEALTHCARE LIFE SCIENCES-2019CSU000973

PATIENT

DRUGS (2)
  1. VISIPAQUE [Suspect]
     Active Substance: IODIXANOL
     Indication: CEREBRAL INFARCTION
  2. VISIPAQUE [Suspect]
     Active Substance: IODIXANOL
     Indication: X-RAY
     Dosage: 200 ML, SINGLE
     Route: 013
     Dates: start: 20181211, end: 20181211

REACTIONS (2)
  - Rash [Recovering/Resolving]
  - Stroke in evolution [Recovering/Resolving]

NARRATIVE: CASE EVENT DATE: 20181213
